FAERS Safety Report 10916459 (Version 2)
Quarter: 2015Q2

REPORT INFORMATION
  Report Type: Spontaneous
  Country: JP (occurrence: JP)
  Receive Date: 20150316
  Receipt Date: 20150403
  Transmission Date: 20150821
  Serious: Yes (Other)
  Sender: FDA-Public Use
  Company Number: JP-SA-2015SA029569

PATIENT
  Sex: Male

DRUGS (4)
  1. PREDONINE [Suspect]
     Active Substance: PREDNISOLONE\PREDNISOLONE ACETATE\PREDNISOLONE SODIUM SUCCINATE
     Indication: PROSTATE CANCER
     Route: 065
     Dates: start: 201408, end: 201410
  2. TAXOTERE [Suspect]
     Active Substance: DOCETAXEL
     Indication: PROSTATE CANCER
     Dosage: 100 MG/BODY ?GIVEN ONCE THREE OR FOUR WEEKS
     Route: 042
     Dates: start: 201408
  3. TAXOTERE [Suspect]
     Active Substance: DOCETAXEL
     Indication: PROSTATE CANCER
     Dosage: 100 MG/BODY ?GIVEN ONCE THREE OR FOUR WEEKS
     Route: 042
  4. PREDONINE [Suspect]
     Active Substance: PREDNISOLONE\PREDNISOLONE ACETATE\PREDNISOLONE SODIUM SUCCINATE
     Indication: PROSTATE CANCER
     Route: 065
     Dates: start: 201411

REACTIONS (1)
  - Diabetes mellitus [Not Recovered/Not Resolved]
